FAERS Safety Report 21259275 (Version 1)
Quarter: 2022Q3

REPORT INFORMATION
  Report Type: Spontaneous
  Country: DK (occurrence: DK)
  Receive Date: 20220826
  Receipt Date: 20220826
  Transmission Date: 20221027
  Serious: Yes (Hospitalization)
  Sender: FDA-Public Use
  Company Number: None

PATIENT
  Age: 56 Year
  Sex: Female
  Weight: 52 kg

DRUGS (2)
  1. PANTOPRAZOLE [Suspect]
     Active Substance: PANTOPRAZOLE
     Indication: Dyspepsia
     Dosage: STRENGTH: UNKNOWN.DOSAGE: VARYING. LATEST DOSE WAS 40 MG TWICE DAILY.
     Route: 048
     Dates: start: 2010, end: 202105
  2. OMEPRAZOLE [Suspect]
     Active Substance: OMEPRAZOLE
     Indication: Dyspepsia
     Dosage: STRENGTH: VARYING, BUT CURRENTLY 40 MG.DOSAGE: VARYING THROUGH TIME. CURRENTLY 40 MG TWICE DAILY.
     Route: 048
     Dates: start: 2011

REACTIONS (3)
  - Diplopia [Unknown]
  - Tremor [Unknown]
  - Hypomagnesaemia [Not Recovered/Not Resolved]

NARRATIVE: CASE EVENT DATE: 20140701
